FAERS Safety Report 4493997-5 (Version None)
Quarter: 2004Q4

REPORT INFORMATION
  Report Type: 
  Country: None (occurrence: None)
  Receive Date: 20041105
  Receipt Date: 20041025
  Transmission Date: 20050328
  Serious: Yes (Hospitalization)
  Sender: FDA-Public Use
  Company Number: US-JNJFOC-20041007608

PATIENT
  Sex: Female

DRUGS (3)
  1. DURAGESIC [Suspect]
     Route: 062
     Dates: start: 20030101
  2. DILAUDID [Concomitant]
     Indication: PAIN
     Dosage: 1 TO 2 MG  AS NEEDED
     Dates: start: 20040101
  3. FLU SHOT [Concomitant]
     Route: 050
     Dates: start: 20041001

REACTIONS (1)
  - NASOPHARYNGITIS [None]
